FAERS Safety Report 9178771 (Version 3)
Quarter: 2013Q4

REPORT INFORMATION
  Report Type: Report from Study
  Country: DE (occurrence: DE)
  Receive Date: 20130321
  Receipt Date: 20131211
  Transmission Date: 20140711
  Serious: Yes (Death, Life-Threatening, Hospitalization)
  Sender: FDA-Public Use
  Company Number: DE-BRISTOL-MYERS SQUIBB COMPANY-17473604

PATIENT
  Age: 76 Year
  Sex: Male
  Weight: 57 kg

DRUGS (23)
  1. PACLITAXEL [Suspect]
     Indication: NON-SMALL CELL LUNG CANCER
     Dosage: RECENT DOSE: 26OCT12
     Route: 042
     Dates: start: 20121005
  2. CARBOPLATIN [Suspect]
     Indication: NON-SMALL CELL LUNG CANCER
     Dosage: RECENT DOSE: 26OCT12
     Route: 042
     Dates: start: 20121005
  3. BEVACIZUMAB [Suspect]
     Indication: NON-SMALL CELL LUNG CANCER
     Dosage: LAST DOSE: 26OCT12
     Route: 042
     Dates: start: 20121005
  4. ASS [Concomitant]
     Indication: PROPHYLAXIS
     Route: 048
     Dates: start: 2003
  5. SIMVAHEXAL [Concomitant]
     Indication: CORONARY ARTERIAL STENT INSERTION
     Route: 048
     Dates: start: 2002
  6. RAMIPRIL [Concomitant]
     Indication: HYPERTENSION
     Route: 048
     Dates: start: 2002
  7. PREDNISOLONE [Concomitant]
     Indication: RASH
     Dosage: 20UG: 17OCT12-18OCT12, 2D?50UG: 19OCT12-23OCT12, 5D?25UG: 24OCT12-24OCT12, 1D
     Route: 048
     Dates: start: 20121017, end: 20121024
  8. TRAMADOL [Concomitant]
     Indication: ABDOMINAL PAIN UPPER
     Route: 048
     Dates: start: 20121025, end: 20121025
  9. JONOSTERIL [Concomitant]
     Route: 042
     Dates: start: 20121029, end: 20121103
  10. CALCIUM GLUCONATE [Concomitant]
     Indication: HYPOGLYCAEMIA
     Route: 042
     Dates: start: 20121029, end: 20121029
  11. NITROGLYCERIN [Concomitant]
     Route: 042
     Dates: start: 20121029, end: 20121029
  12. CLONIDINE [Concomitant]
     Indication: HYPERTENSION
     Route: 042
     Dates: start: 20121029, end: 20121029
  13. GLUCOSE [Concomitant]
     Indication: PARENTERAL NUTRITION
     Route: 042
     Dates: start: 20121030, end: 20121030
  14. PROPOFOL [Concomitant]
     Dosage: 02NOV12-02NOV12: 40MG?NOV12-NOV12: 800MG
     Route: 042
     Dates: start: 20121102, end: 20121102
  15. SUFENTANIL [Concomitant]
     Route: 042
     Dates: start: 20121102, end: 20121103
  16. NOVAMINSULFON [Concomitant]
     Indication: PAIN
     Route: 042
     Dates: start: 20121102, end: 20121102
  17. NOREPINEPHRINE [Concomitant]
     Route: 042
     Dates: start: 20121102, end: 20121103
  18. SUCCINYLCHOLINE [Concomitant]
     Route: 042
     Dates: start: 20121102, end: 20121102
  19. AMIODARONE [Concomitant]
     Indication: ARRHYTHMIA
     Route: 042
     Dates: start: 20121102, end: 20121102
  20. DEXAMETHASONE [Concomitant]
     Dosage: 5-5OCT12?26-26OCT12
     Route: 042
     Dates: start: 20121005, end: 20121026
  21. DIMETHINDENE MALEATE [Concomitant]
     Dosage: 5-5OCT12?26-26OCT12
     Route: 042
     Dates: start: 20121005, end: 20121026
  22. RANITIDINE [Concomitant]
     Dosage: 5-5OCT12?26-26OCT12
     Route: 042
     Dates: start: 20121005, end: 20121026
  23. GRANISETRON [Concomitant]
     Dosage: 5-5OCT12?26-26OCT12
     Route: 042
     Dates: start: 20121005, end: 20121026

REACTIONS (3)
  - Pulmonary embolism [Fatal]
  - Upper gastrointestinal haemorrhage [Recovered/Resolved]
  - Duodenal ulcer perforation [Recovered/Resolved]
